FAERS Safety Report 4925037-5 (Version None)
Quarter: 2006Q1

REPORT INFORMATION
  Report Type: 
  Country: None (occurrence: None)
  Receive Date: 20060222
  Receipt Date: 20060119
  Transmission Date: 20060701
  Serious: Yes (Congenital Anomaly)
  Sender: FDA-Public Use
  Company Number: 8014449

PATIENT
  Sex: Female

DRUGS (2)
  1. KEPPRA [Suspect]
     Indication: CONVULSION
     Dosage: TRP
     Route: 064
     Dates: start: 20040101, end: 20050803
  2. FOLIC ACID [Suspect]
     Indication: VITAMIN SUPPLEMENTATION
     Dosage: TRP
     Route: 064
     Dates: end: 20050803

REACTIONS (2)
  - DRUG EXPOSURE DURING PREGNANCY [None]
  - SILVER-RUSSELL SYNDROME [None]
